FAERS Safety Report 7407257-3 (Version None)
Quarter: 2011Q2

REPORT INFORMATION
  Report Type: 
  Country: None (occurrence: None)
  Receive Date: 20110411
  Receipt Date: 20110329
  Transmission Date: 20111010
  Serious: Yes (Other)
  Sender: FDA-Public Use
  Company Number: PHHY2011US02057

PATIENT
  Sex: Male
  Weight: 77 kg

DRUGS (6)
  1. BENZALAMIDE [Concomitant]
     Dosage: 600 MG, BID
     Route: 048
  2. MOUTHWASH [Concomitant]
     Dosage: SOS
  3. LAMICTAL [Concomitant]
     Dosage: 200 MG, TID
     Route: 048
  4. TOPAMAX [Concomitant]
     Dosage: 150 MG, BID
     Route: 048
  5. KLONOPIN [Concomitant]
     Dosage: 1.5 MG, HS
     Route: 048
  6. AFINITOR [Suspect]
     Indication: ASTROCYTOMA
     Dosage: 5 MG, DAILY
     Route: 048
     Dates: start: 20101229

REACTIONS (7)
  - MOUTH ULCERATION [None]
  - ORAL HERPES [None]
  - LYMPHANGIOLEIOMYOMATOSIS [None]
  - ORAL PAIN [None]
  - EMPHYSEMA [None]
  - MOOD ALTERED [None]
  - FLAT AFFECT [None]
